FAERS Safety Report 6800913-7 (Version None)
Quarter: 2010Q2

REPORT INFORMATION
  Report Type: 
  Country: None (occurrence: None)
  Receive Date: 20100629
  Receipt Date: 20100616
  Transmission Date: 20101027
  Serious: Yes (Hospitalization)
  Sender: FDA-Public Use
  Company Number: PHHY2010JP36086

PATIENT
  Age: 3 Year
  Sex: Male

DRUGS (16)
  1. ZADITEN [Suspect]
     Indication: HYPERSENSITIVITY
     Dosage: 0.45 MG, BID
     Route: 048
     Dates: start: 20100510, end: 20100515
  2. ZADITEN [Suspect]
     Indication: OTITIS MEDIA ACUTE
  3. TRANSAMIN [Suspect]
     Indication: HYPERSENSITIVITY
     Dosage: 0.4 MG
     Route: 048
     Dates: start: 20100517, end: 20100517
  4. TRANSAMIN [Suspect]
     Indication: OTITIS MEDIA ACUTE
  5. ANTIBIOTICS [Suspect]
     Indication: HYPERSENSITIVITY
  6. ANTIALLERGIC AGENTS, EXCL CORTICOSTEROIDS [Suspect]
     Indication: HYPERSENSITIVITY
  7. ALPINYL [Suspect]
     Indication: OTITIS MEDIA ACUTE
     Dosage: 100 MG
     Route: 048
     Dates: start: 20100516, end: 20100516
  8. WIDECILLIN [Suspect]
     Indication: OTITIS MEDIA ACUTE
     Dosage: 0.93 G, TID
     Route: 048
     Dates: start: 20100510, end: 20100515
  9. BIOFERMIN [Suspect]
     Indication: OTITIS MEDIA ACUTE
     Dosage: 0.56 G, TID
     Route: 048
     Dates: start: 20100510, end: 20100517
  10. LYSOZYME HYDROCHLORIDE [Suspect]
     Indication: OTITIS MEDIA ACUTE
     Dosage: 0.2 G, BID
     Route: 048
     Dates: start: 20100510, end: 20100517
  11. MUCODYNE [Suspect]
     Indication: OTITIS MEDIA ACUTE
     Dosage: 0.65 G, BID
     Route: 048
     Dates: start: 20100510, end: 20100517
  12. BERACHIN [Suspect]
     Indication: OTITIS MEDIA ACUTE
     Dosage: 0.3 G, BID
     Route: 048
     Dates: start: 20100510, end: 20100515
  13. CLARITH [Suspect]
     Indication: OTITIS MEDIA ACUTE
     Dosage: 0.6 MG
     Route: 048
     Dates: start: 20100515, end: 20100517
  14. CLAVAMOX [Concomitant]
     Indication: OTITIS MEDIA ACUTE
     Dosage: 1.4 G
     Route: 048
     Dates: start: 20100517, end: 20100517
  15. ASVERIN [Concomitant]
     Indication: OTITIS MEDIA ACUTE
     Dosage: 0.3 MG
     Dates: start: 20100517, end: 20100517
  16. MIYA-BM [Concomitant]
     Indication: OTITIS MEDIA ACUTE
     Dosage: UNK
     Route: 048
     Dates: start: 20100517, end: 20100518

REACTIONS (3)
  - CONDITION AGGRAVATED [None]
  - ERYTHEMA MULTIFORME [None]
  - PYREXIA [None]
